FAERS Safety Report 24689765 (Version 1)
Quarter: 2024Q4

REPORT INFORMATION
  Report Type: Spontaneous
  Country: FR (occurrence: FR)
  Receive Date: 20241203
  Receipt Date: 20241203
  Transmission Date: 20250114
  Serious: Yes (Other)
  Sender: HIKMA
  Company Number: None

PATIENT
  Age: 59 Year
  Sex: Male
  Weight: 75 kg

DRUGS (11)
  1. CARBOPLATIN [Suspect]
     Active Substance: CARBOPLATIN
     Dosage: 670 MILLIGRAM, SINGLE
     Route: 042
     Dates: start: 202312
  2. CARBOPLATIN [Suspect]
     Active Substance: CARBOPLATIN
     Dosage: 670 MILLIGRAM, SINGLE
     Route: 042
     Dates: start: 202401
  3. CARBOPLATIN [Suspect]
     Active Substance: CARBOPLATIN
     Indication: Adenocarcinoma
     Dosage: 740 MILLIGRAM, SINGLE
     Route: 042
     Dates: start: 20231129
  4. CARBOPLATIN [Suspect]
     Active Substance: CARBOPLATIN
     Dosage: 780 MILLIGRAM, SINGLE
     Route: 042
     Dates: start: 20240202
  5. PREDNISONE [Suspect]
     Active Substance: PREDNISONE
     Indication: Premedication
     Dosage: 40 MILLIGRAMS (CYCLICAL)
     Route: 048
     Dates: start: 20231128
  6. EMEND [Suspect]
     Active Substance: APREPITANT
     Indication: Premedication
     Dosage: 125 MILLIGRAM, SINGLE (CYCLICAL)
     Route: 048
     Dates: start: 20231129
  7. EMEND [Suspect]
     Active Substance: APREPITANT
     Dosage: 80 MILLIGRAM
     Route: 048
  8. EMEND [Suspect]
     Active Substance: APREPITANT
     Dosage: 80 MILLIGRAM
     Route: 048
  9. PEMBROLIZUMAB [Suspect]
     Active Substance: PEMBROLIZUMAB
     Indication: Adenocarcinoma
     Dosage: 200 MILLIGRAMS (CYCLICAL)
     Route: 042
     Dates: start: 20231129, end: 20240412
  10. PEMETREXED [Suspect]
     Active Substance: PEMETREXED
     Indication: Adenocarcinoma
     Dosage: 910 MILLIGRAMS (CYCLICAL)
     Route: 042
     Dates: start: 20231129, end: 20240412
  11. ONDANSETRON [Suspect]
     Active Substance: ONDANSETRON
     Indication: Prophylaxis of nausea and vomiting
     Dosage: 10 DOSAGE FORM, SINGLE (CYCLICAL)
     Route: 048
     Dates: start: 202311

REACTIONS (1)
  - Pulmonary embolism [Recovering/Resolving]

NARRATIVE: CASE EVENT DATE: 20240102
